FAERS Safety Report 24662323 (Version 2)
Quarter: 2024Q4

REPORT INFORMATION
  Report Type: Spontaneous
  Country: CA (occurrence: CA)
  Receive Date: 20241125
  Receipt Date: 20241126
  Transmission Date: 20250114
  Serious: No
  Sender: SUNOVION
  Company Number: CA-SMPA-2024SPA005331AA

PATIENT

DRUGS (1)
  1. RELUGOLIX [Suspect]
     Active Substance: RELUGOLIX
     Indication: Endometriosis
     Dosage: UNK
     Route: 048

REACTIONS (2)
  - Vomiting [Recovered/Resolved]
  - Nausea [Recovered/Resolved]
